FAERS Safety Report 18281135 (Version 4)
Quarter: 2020Q4

REPORT INFORMATION
  Report Type: Report from Study
  Country: CA (occurrence: CA)
  Receive Date: 20200918
  Receipt Date: 20201026
  Transmission Date: 20210113
  Serious: Yes (Other)
  Sender: FDA-Public Use
  Company Number: CA-GLAXOSMITHKLINE-CA2020AMR175173

PATIENT
  Age: 41 Year
  Sex: Female

DRUGS (4)
  1. SALBUTAMOL SULPHATE [Suspect]
     Active Substance: ALBUTEROL SULFATE
     Indication: ASTHMA
     Dosage: UNK, 1-2 INHALATIONS EVERY 4 HOURS
     Route: 055
  2. SPIRIVA [Suspect]
     Active Substance: TIOTROPIUM BROMIDE MONOHYDRATE
     Indication: PRODUCT USED FOR UNKNOWN INDICATION
     Dosage: 2 PUFF(S), 1D, 2.5 UG
     Route: 055
  3. PREDNISONE. [Suspect]
     Active Substance: PREDNISONE
     Indication: PRODUCT USED FOR UNKNOWN INDICATION
     Dosage: UNK,PRN
  4. SYMBICORT [Suspect]
     Active Substance: BUDESONIDE\FORMOTEROL FUMARATE DIHYDRATE
     Indication: PRODUCT USED FOR UNKNOWN INDICATION
     Dosage: 4 PUFF(S), BID, 200/6 UG

REACTIONS (19)
  - Sleep disorder due to a general medical condition [Unknown]
  - Productive cough [Not Recovered/Not Resolved]
  - Gastrooesophageal reflux disease [Unknown]
  - Loss of personal independence in daily activities [Unknown]
  - Eosinophil count increased [Unknown]
  - Photophobia [Unknown]
  - Wheezing [Unknown]
  - Intracranial pressure increased [Unknown]
  - Dyspnoea [Unknown]
  - Therapeutic product effect incomplete [Unknown]
  - Mucosal discolouration [Not Recovered/Not Resolved]
  - Gallbladder operation [Unknown]
  - Therapy interrupted [Unknown]
  - Anaemia [Unknown]
  - Asthma [Unknown]
  - Anxiety [Unknown]
  - Rhinitis allergic [Unknown]
  - Migraine [Unknown]
  - Upper-airway cough syndrome [Unknown]

NARRATIVE: CASE EVENT DATE: 20200109
